FAERS Safety Report 6044260-2 (Version None)
Quarter: 2009Q1

REPORT INFORMATION
  Report Type: 
  Country: None (occurrence: None)
  Receive Date: 20090120
  Receipt Date: 20090112
  Transmission Date: 20090719
  Serious: Yes (Life-Threatening, Hospitalization, Disabling)
  Sender: FDA-Public Use
  Company Number: GB-MERCK-0901GBR00008

PATIENT
  Age: 70 Year
  Sex: Male

DRUGS (19)
  1. ZOCOR [Suspect]
     Indication: BLOOD CHOLESTEROL INCREASED
     Route: 048
  2. AMITRIPTYLINE HYDROCHLORIDE [Concomitant]
     Route: 065
  3. ASPIRIN [Concomitant]
     Route: 065
  4. COSOPT [Concomitant]
     Route: 065
  5. DICLOFENAC [Concomitant]
     Route: 065
  6. FENTANYL [Concomitant]
     Route: 065
  7. FLOXACILLIN [Concomitant]
     Route: 065
  8. FUSIDIC ACID [Concomitant]
     Route: 065
  9. GABAPENTIN [Concomitant]
     Route: 065
  10. GLUCOSAMINE [Concomitant]
     Route: 065
  11. LACTULOSE [Concomitant]
     Route: 065
  12. LISINOPRIL [Concomitant]
     Route: 065
  13. MAGNESIUM HYDROXIDE [Concomitant]
     Route: 065
  14. POLYETHYLENE GLYCOL 3350 AND POTASSIUM CHLORIDE AND SODIUM BICARBONATE [Concomitant]
     Route: 065
  15. ACETAMINOPHEN [Concomitant]
     Route: 065
  16. SENNA [Concomitant]
     Route: 065
  17. TIOTROPIUM BROMIDE [Concomitant]
     Route: 065
  18. TRAMADOL HYDROCHLORIDE [Concomitant]
     Route: 065
  19. LATANOPROST [Concomitant]
     Route: 065

REACTIONS (4)
  - MUSCLE ATROPHY [None]
  - RENAL FAILURE ACUTE [None]
  - RESPIRATORY FAILURE [None]
  - RHABDOMYOLYSIS [None]
